FAERS Safety Report 25904412 (Version 2)
Quarter: 2025Q4

REPORT INFORMATION
  Report Type: Spontaneous
  Country: JP (occurrence: JP)
  Receive Date: 20251010
  Receipt Date: 20251024
  Transmission Date: 20260117
  Serious: Yes (Hospitalization)
  Sender: ROCHE
  Company Number: JP-CHUGAI-2025031930

PATIENT
  Age: 9 Year
  Sex: Male
  Weight: 16.5 kg

DRUGS (9)
  1. EVRYSDI [Suspect]
     Active Substance: RISDIPLAM
     Indication: Spinal muscular atrophy
     Dosage: 4 MILLIGRAM, QD
     Route: 048
     Dates: start: 20211215
  2. EVRYSDI [Suspect]
     Active Substance: RISDIPLAM
     Dosage: 5 MILLIGRAM, QD
     Route: 048
  3. Alfarol Powder 1ug/g [Concomitant]
     Route: 048
     Dates: start: 20180307
  4. ATROPINE SULFATE [Concomitant]
     Active Substance: ATROPINE SULFATE
     Route: 048
  5. PRANLUKAST [Concomitant]
     Active Substance: PRANLUKAST
     Route: 048
     Dates: start: 20170301
  6. MIYA-BM [Concomitant]
     Active Substance: CLOSTRIDIUM BUTYRICUM SPORES STRAIN M-55
     Route: 048
  7. MAGNESIUM OXIDE [Concomitant]
     Active Substance: MAGNESIUM OXIDE
     Route: 065
     Dates: start: 20190612
  8. MENATETRENONE [Concomitant]
     Active Substance: MENATETRENONE
     Route: 048
     Dates: start: 20191113
  9. CARBOCYSTEINE [Concomitant]
     Active Substance: CARBOCYSTEINE
     Route: 048

REACTIONS (1)
  - Femur fracture [Not Recovered/Not Resolved]

NARRATIVE: CASE EVENT DATE: 20250829
